FAERS Safety Report 24777726 (Version 2)
Quarter: 2025Q1

REPORT INFORMATION
  Report Type: Spontaneous
  Country: US (occurrence: US)
  Receive Date: 20241226
  Receipt Date: 20250107
  Transmission Date: 20250409
  Serious: No
  Sender: BAYER HEALTHCARE PHARMACEUTICALS INC.
  Company Number: US-BAYER-2024A181991

PATIENT
  Age: 24 Year
  Sex: Female
  Weight: 116.55 kg

DRUGS (2)
  1. MIRENA [Suspect]
     Active Substance: LEVONORGESTREL
     Indication: Contraception
     Dosage: 20?G/DAY
     Route: 015
     Dates: start: 20241028, end: 20241223
  2. MIRENA [Suspect]
     Active Substance: LEVONORGESTREL
     Indication: Menstruation irregular

REACTIONS (4)
  - Pelvic pain [Recovered/Resolved]
  - Post procedural haemorrhage [Recovered/Resolved]
  - Procedural pain [Recovered/Resolved]
  - Device expulsion [Recovered/Resolved]

NARRATIVE: CASE EVENT DATE: 20240101
